FAERS Safety Report 25024484 (Version 1)
Quarter: 2025Q1

REPORT INFORMATION
  Report Type: Spontaneous
  Country: GB (occurrence: GB)
  Receive Date: 20250228
  Receipt Date: 20250228
  Transmission Date: 20250409
  Serious: Yes (Other)
  Sender: PFIZER
  Company Number: None

PATIENT
  Age: 41 Year
  Sex: Female

DRUGS (2)
  1. MEDROXYPROGESTERONE ACETATE [Suspect]
     Active Substance: MEDROXYPROGESTERONE ACETATE
  2. SENNA [Concomitant]
     Active Substance: SENNOSIDES

REACTIONS (3)
  - Femur fracture [Recovering/Resolving]
  - Alcohol poisoning [Unknown]
  - Fall [Unknown]
